FAERS Safety Report 11131416 (Version 1)
Quarter: 2015Q2

REPORT INFORMATION
  Report Type: Spontaneous
  Country: US (occurrence: US)
  Receive Date: 20150522
  Receipt Date: 20150522
  Transmission Date: 20150821
  Serious: No
  Sender: FDA-Public Use
  Company Number: US-LUNDBECK-DKLU1111421

PATIENT
  Age: 44 Year
  Sex: Male
  Weight: 100 kg

DRUGS (4)
  1. ANXIETY/DEPRESSION MEDICATION [Concomitant]
     Indication: ANXIETY
  2. TREMORS IN HAND MEDICATION [Concomitant]
     Indication: TREMOR
  3. NORTHERA [Suspect]
     Active Substance: DROXIDOPA
     Indication: LOSS OF CONSCIOUSNESS
     Route: 065
     Dates: start: 20150403, end: 20150410
  4. ANXIETY/DEPRESSION MEDICATION [Concomitant]
     Indication: DEPRESSION

REACTIONS (1)
  - Neck pain [Recovered/Resolved]

NARRATIVE: CASE EVENT DATE: 20150403
